FAERS Safety Report 21178495 (Version 2)
Quarter: 2023Q1

REPORT INFORMATION
  Report Type: Report from Study
  Country: US (occurrence: US)
  Receive Date: 20220805
  Receipt Date: 20230210
  Transmission Date: 20230418
  Serious: Yes (Other)
  Sender: FDA-Public Use
  Company Number: US-KYOWAKIRIN-2022BKK012281

PATIENT

DRUGS (5)
  1. CRYSVITA [Suspect]
     Active Substance: BUROSUMAB-TWZA
     Indication: Hereditary hypophosphataemic rickets
     Dosage: 60 MG, 1X/2 WEEKS
     Route: 065
  2. CRYSVITA [Suspect]
     Active Substance: BUROSUMAB-TWZA
     Indication: Hereditary hypophosphataemic rickets
     Dosage: 50 MG, 1X/2 WEEKS (50 MG ALTERNATING WITH 40 MG)
     Route: 058
     Dates: start: 20190206
  3. CRYSVITA [Suspect]
     Active Substance: BUROSUMAB-TWZA
     Dosage: 40 MG, 1X/2 WEEKS (50 MG ALTERNATING WITH 40 MG)
     Route: 058
     Dates: start: 20190206
  4. CRYSVITA [Suspect]
     Active Substance: BUROSUMAB-TWZA
     Indication: Hereditary hypophosphataemic rickets
     Dosage: 50 MG, 1X/2 WEEKS (50 MG ALTERNATING WITH 40 MG)
     Route: 058
     Dates: start: 20190206
  5. CRYSVITA [Suspect]
     Active Substance: BUROSUMAB-TWZA
     Dosage: 40 MG, 1X/2 WEEKS (50 MG ALTERNATING WITH 40 MG)
     Route: 058
     Dates: start: 20190206

REACTIONS (12)
  - Antibiotic associated colitis [Recovered/Resolved]
  - Intestinal ulcer [Recovered/Resolved]
  - Influenza [Unknown]
  - Blood parathyroid hormone increased [Unknown]
  - Blood phosphorus decreased [Unknown]
  - Carbon dioxide increased [Unknown]
  - Blood potassium increased [Unknown]
  - Blood alkaline phosphatase increased [Unknown]
  - Fatigue [Unknown]
  - Therapeutic response shortened [Unknown]
  - Constipation [Unknown]
  - Gingival abscess [Unknown]

NARRATIVE: CASE EVENT DATE: 20210101
